FAERS Safety Report 21199903 (Version 1)
Quarter: 2022Q3

REPORT INFORMATION
  Report Type: Spontaneous
  Country: US (occurrence: None)
  Receive Date: 20220810
  Receipt Date: 20220810
  Transmission Date: 20221026
  Serious: No
  Sender: FDA-Public Use
  Company Number: None

PATIENT
  Sex: 0

DRUGS (1)
  1. LATANOPROST [Suspect]
     Active Substance: LATANOPROST
     Indication: Glaucoma
     Dosage: FREQUENCY : AT BEDTIME;?
     Route: 047
     Dates: start: 20220729, end: 20220805

REACTIONS (1)
  - Nightmare [None]

NARRATIVE: CASE EVENT DATE: 20220804
